FAERS Safety Report 5216433-X (Version None)
Quarter: 2007Q1

REPORT INFORMATION
  Report Type: 
  Country: None (occurrence: None)
  Receive Date: 20061127
  Receipt Date: 20061021
  Transmission Date: 20070707
  Serious: Yes (Hospitalization, Other)
  Sender: FDA-Public Use
  Company Number: US-JNJFOC-20061005667

PATIENT
  Age: 26 Year
  Sex: Female
  Weight: 54.4316 kg

DRUGS (1)
  1. ORTHO TRI-CYCLEN LO [Suspect]
     Indication: CONTRACEPTION
     Dosage: ORAL
     Route: 048
     Dates: end: 20061020

REACTIONS (2)
  - PULMONARY EMBOLISM [None]
  - THROMBOSIS [None]
